FAERS Safety Report 16685766 (Version 2)
Quarter: 2019Q3

REPORT INFORMATION
  Report Type: Report from Study
  Country: US (occurrence: US)
  Receive Date: 20190809
  Receipt Date: 20190830
  Transmission Date: 20191004
  Serious: No
  Sender: FDA-Public Use
  Company Number: US-SA-2019SA216723

PATIENT
  Age: 67 Year
  Sex: Female

DRUGS (1)
  1. SARILUMAB [Suspect]
     Active Substance: SARILUMAB
     Indication: RHEUMATOID ARTHRITIS
     Dosage: 200 MG, QOW
     Route: 058
     Dates: start: 20190618, end: 20190716

REACTIONS (3)
  - Blood cholesterol increased [Unknown]
  - Blood triglycerides increased [Not Recovered/Not Resolved]
  - High density lipoprotein decreased [Unknown]

NARRATIVE: CASE EVENT DATE: 20190719
